FAERS Safety Report 10171357 (Version 1)
Quarter: 2014Q2

REPORT INFORMATION
  Report Type: Spontaneous
  Country: US (occurrence: None)
  Receive Date: 20140513
  Receipt Date: 20140513
  Transmission Date: 20141212
  Serious: No
  Sender: FDA-Public Use
  Company Number: None

PATIENT
  Age: 19 Year
  Sex: Female
  Weight: 132.7 kg

DRUGS (2)
  1. DESMOPRESSIN [Suspect]
     Indication: DIABETES INSIPIDUS
     Dosage: 1.8 MG (9 TABS) TWICE DAILY ORAL
     Route: 048
     Dates: start: 20140109, end: 20140123
  2. DESMOPRESSIN [Suspect]
     Indication: HYPOPITUITARISM
     Dosage: 1.8 MG (9 TABS) TWICE DAILY ORAL
     Route: 048
     Dates: start: 20140109, end: 20140123

REACTIONS (3)
  - Drug ineffective [None]
  - Product substitution issue [None]
  - Pollakiuria [None]
